FAERS Safety Report 9006967 (Version 1)
Quarter: 2013Q1

REPORT INFORMATION
  Report Type: Spontaneous
  Country: US (occurrence: US)
  Receive Date: 20130110
  Receipt Date: 20130110
  Transmission Date: 20140127
  Serious: No
  Sender: FDA-Public Use
  Company Number: US-009507513-1301USA002513

PATIENT
  Sex: Female

DRUGS (2)
  1. POTASSIUM CHLORIDE [Suspect]
     Indication: BLOOD POTASSIUM DECREASED
     Dosage: 10 MEQ, TID
     Route: 048
     Dates: start: 2000, end: 2000
  2. POTASSIUM CHLORIDE [Suspect]
     Dosage: UNK MEQ, UNK
     Route: 048

REACTIONS (1)
  - Abdominal pain upper [Recovered/Resolved]
